FAERS Safety Report 5427811-8 (Version None)
Quarter: 2007Q3

REPORT INFORMATION
  Report Type: 
  Country: None (occurrence: None)
  Receive Date: 20070828
  Receipt Date: 20070823
  Transmission Date: 20080115
  Serious: Yes (Hospitalization, Other)
  Sender: FDA-Public Use
  Company Number: PHEH2007US10412

PATIENT
  Age: 65 Year
  Sex: Male

DRUGS (1)
  1. TRILEPTAL [Suspect]
     Indication: CONVULSION

REACTIONS (4)
  - BLOOD SODIUM DECREASED [None]
  - HYPONATRAEMIA [None]
  - NEPHRECTOMY [None]
  - SALIVARY GLAND ENLARGEMENT [None]
